FAERS Safety Report 6333262-4 (Version None)
Quarter: 2009Q3

REPORT INFORMATION
  Report Type: 
  Country: None (occurrence: None)
  Receive Date: 20090828
  Receipt Date: 20090828
  Transmission Date: 20100115
  Serious: Yes (Hospitalization)
  Sender: FDA-Public Use
  Company Number: GB-PFIZER INC-2009240395

PATIENT

DRUGS (1)
  1. XALATAN [Suspect]

REACTIONS (2)
  - EYE INJURY [None]
  - SWELLING [None]
